FAERS Safety Report 10444898 (Version 2)
Quarter: 2015Q1

REPORT INFORMATION
  Report Type: Report from Study
  Country: KE (occurrence: KE)
  Receive Date: 20140910
  Receipt Date: 20150107
  Transmission Date: 20150720
  Serious: Yes (Death, Other)
  Sender: FDA-Public Use
  Company Number: KE-GILEAD-2014-0114364

PATIENT
  Age: 28 Year
  Sex: Male

DRUGS (1)
  1. EMTRICITABINE/TENOFOVIR DISOPROXIL FUMARATE [Suspect]
     Active Substance: EMTRICITABINE\TENOFOVIR DISOPROXIL
     Indication: PROPHYLAXIS AGAINST HIV INFECTION
     Dosage: UNK UNKNOWN, UNK
     Route: 065
     Dates: start: 20131111

REACTIONS (1)
  - Death [Fatal]

NARRATIVE: CASE EVENT DATE: 20140808
